FAERS Safety Report 9701181 (Version 1)
Quarter: 2013Q4

REPORT INFORMATION
  Report Type: Spontaneous
  Country: US (occurrence: US)
  Receive Date: 20131121
  Receipt Date: 20131121
  Transmission Date: 20140711
  Serious: No
  Sender: FDA-Public Use
  Company Number: US-GILEAD-2008-0015980

PATIENT
  Age: 70 Year
  Sex: Female

DRUGS (13)
  1. LETAIRIS [Suspect]
     Indication: PULMONARY HYPERTENSION
     Route: 048
     Dates: start: 20080328, end: 20080330
  2. FUROSEMIDE [Concomitant]
  3. COZAAR [Concomitant]
  4. NITROSTAT [Concomitant]
  5. NITRO PATCH [Concomitant]
  6. DIGOXIN [Concomitant]
  7. METFORMIN [Concomitant]
  8. JANUVIA [Concomitant]
  9. ASA [Concomitant]
  10. AMBIEN [Concomitant]
  11. VITAMIN C [Concomitant]
  12. VITAMIN E [Concomitant]
  13. MULTIVITAMIN [Concomitant]

REACTIONS (7)
  - Chest pain [Unknown]
  - Nausea [Unknown]
  - Decreased appetite [Unknown]
  - Tremor [Unknown]
  - Dyspnoea [Unknown]
  - Nasal congestion [Unknown]
  - Palpitations [Unknown]
